FAERS Safety Report 11660282 (Version 1)
Quarter: 2015Q4

REPORT INFORMATION
  Report Type: Spontaneous
  Country: US (occurrence: None)
  Receive Date: 20151023
  Receipt Date: 20151023
  Transmission Date: 20160304
  Serious: Yes (Life-Threatening)
  Sender: FDA-Public Use
  Company Number: None

PATIENT
  Age: 74 Year
  Sex: Male
  Weight: 97.2 kg

DRUGS (1)
  1. NAPROXEN. [Suspect]
     Active Substance: NAPROXEN
     Indication: PAIN
     Dates: start: 20130601, end: 20130625

REACTIONS (7)
  - Skin exfoliation [None]
  - Medication monitoring error [None]
  - Urticaria [None]
  - Pruritus [None]
  - Stevens-Johnson syndrome [None]
  - Rash [None]
  - Erythema multiforme [None]

NARRATIVE: CASE EVENT DATE: 20130625
